FAERS Safety Report 4378818-3 (Version None)
Quarter: 2004Q2

REPORT INFORMATION
  Report Type: 
  Country: None (occurrence: None)
  Receive Date: 20040610
  Receipt Date: 20040601
  Transmission Date: 20050107
  Serious: Yes (Hospitalization, Disabling)
  Sender: FDA-Public Use
  Company Number: OSCN-NO-0303S-0081

PATIENT
  Age: 55 Year
  Sex: Female

DRUGS (2)
  1. OMNISCAN [Suspect]
     Indication: RENAL CYST
     Dosage: SINGLE DOSE
     Dates: start: 20020108, end: 20020108
  2. OMNISCAN [Suspect]
     Indication: RENAL TRANSPLANT
     Dosage: SINGLE DOSE
     Dates: start: 20020108, end: 20020108

REACTIONS (18)
  - ALOPECIA [None]
  - ARTHRALGIA [None]
  - ASTHENIA [None]
  - BURNING SENSATION [None]
  - DIZZINESS [None]
  - GENERAL PHYSICAL HEALTH DETERIORATION [None]
  - HAEMODIALYSIS [None]
  - HYPERSENSITIVITY [None]
  - MOBILITY DECREASED [None]
  - MYALGIA [None]
  - NAUSEA [None]
  - PAIN [None]
  - PALPITATIONS [None]
  - PNEUMONIA [None]
  - PULMONARY EMBOLISM [None]
  - RENAL IMPAIRMENT [None]
  - SUBCUTANEOUS NODULE [None]
  - VOMITING [None]
